FAERS Safety Report 16461891 (Version 1)
Quarter: 2019Q2

REPORT INFORMATION
  Report Type: Spontaneous
  Country: US (occurrence: US)
  Receive Date: 20190621
  Receipt Date: 20190621
  Transmission Date: 20190711
  Serious: Yes (Hospitalization)
  Sender: FDA-Public Use
  Company Number: US-009507513-1906USA004654

PATIENT
  Sex: Male

DRUGS (5)
  1. SINEMET [Suspect]
     Active Substance: CARBIDOPA\LEVODOPA
     Dosage: 2 TABLETS EVERY 3 HOURS
     Route: 048
     Dates: start: 201903
  2. SINEMET CR [Suspect]
     Active Substance: CARBIDOPA\LEVODOPA
     Indication: PARKINSON^S DISEASE
     Dosage: 2 DOSAGE FORM, Q3H
     Route: 048
     Dates: start: 2017
  3. AZILECT [Concomitant]
     Active Substance: RASAGILINE MESYLATE
  4. SINEMET [Suspect]
     Active Substance: CARBIDOPA\LEVODOPA
     Indication: PARKINSON^S DISEASE
     Dosage: 2 TABLETS EVERY 3 HOURS
     Route: 048
     Dates: start: 2010, end: 2017
  5. REQUIP [Concomitant]
     Active Substance: ROPINIROLE HYDROCHLORIDE

REACTIONS (8)
  - Hallucination [Not Recovered/Not Resolved]
  - Drug ineffective [Not Recovered/Not Resolved]
  - Spinal fusion surgery [Not Recovered/Not Resolved]
  - Gait disturbance [Not Recovered/Not Resolved]
  - Spinal decompression [Not Recovered/Not Resolved]
  - Balance disorder [Not Recovered/Not Resolved]
  - Hallucination [Not Recovered/Not Resolved]
  - Somnolence [Not Recovered/Not Resolved]

NARRATIVE: CASE EVENT DATE: 2017
